FAERS Safety Report 8597503-5 (Version None)
Quarter: 2012Q3

REPORT INFORMATION
  Report Type: 
  Country: None (occurrence: None)
  Receive Date: 20120802
  Receipt Date: 20120719
  Transmission Date: 20120928
  Serious: Yes (Hospitalization, Other)
  Sender: FDA-Public Use
  Company Number: UCM201207-000059

PATIENT
  Age: 44 Year
  Sex: Female

DRUGS (2)
  1. CLOZAPINE [Suspect]
     Indication: PSYCHOTIC DISORDER
  2. LAMOTRIGINE [Suspect]
     Indication: PSYCHOTIC DISORDER

REACTIONS (4)
  - NEUROLEPTIC MALIGNANT SYNDROME [None]
  - DIZZINESS [None]
  - RASH [None]
  - AGRANULOCYTOSIS [None]
